FAERS Safety Report 5520910-1 (Version None)
Quarter: 2007Q4

REPORT INFORMATION
  Report Type: 
  Country: None (occurrence: None)
  Receive Date: 20071119
  Receipt Date: 20071109
  Transmission Date: 20080405
  Serious: Yes (Hospitalization)
  Sender: FDA-Public Use
  Company Number: DE-AMGEN-UK124767

PATIENT
  Sex: Male

DRUGS (1)
  1. PALIFERMIN [Suspect]
     Indication: MUCOSAL INFLAMMATION
     Route: 040
     Dates: start: 20050318

REACTIONS (2)
  - RESPIRATORY FAILURE [None]
  - TONGUE OEDEMA [None]
